FAERS Safety Report 21755290 (Version 1)
Quarter: 2022Q4

REPORT INFORMATION
  Report Type: Spontaneous
  Country: US (occurrence: None)
  Receive Date: 20221220
  Receipt Date: 20221220
  Transmission Date: 20230113
  Serious: Yes (Hospitalization)
  Sender: FDA-Public Use
  Company Number: US-MDD US Operations-SUP202201-000085

PATIENT
  Age: 34 Year
  Sex: Female
  Weight: 75.7 kg

DRUGS (1)
  1. OXTELLAR XR [Suspect]
     Active Substance: OXCARBAZEPINE
     Indication: Epilepsy
     Dates: start: 201705, end: 20220106

REACTIONS (5)
  - Generalised tonic-clonic seizure [Unknown]
  - COVID-19 [Unknown]
  - Sleep deficit [Unknown]
  - Anxiety [Unknown]
  - Product dose omission issue [Unknown]

NARRATIVE: CASE EVENT DATE: 20220101
